FAERS Safety Report 6836151-1 (Version None)
Quarter: 2010Q3

REPORT INFORMATION
  Report Type: 
  Country: None (occurrence: None)
  Receive Date: 20100713
  Receipt Date: 20100706
  Transmission Date: 20110219
  Serious: Yes (Other)
  Sender: FDA-Public Use
  Company Number: FR-ROCHE-714051

PATIENT
  Age: 63 Year
  Sex: Female

DRUGS (2)
  1. PEGASYS [Suspect]
     Indication: HEPATITIS C
     Route: 058
  2. COPEGUS [Suspect]
     Indication: HEPATITIS C
     Route: 048

REACTIONS (7)
  - ALOPECIA [None]
  - ANAEMIA [None]
  - CUTANEOUS SARCOIDOSIS [None]
  - PHLEBITIS [None]
  - PSORIASIS [None]
  - PULMONARY FIBROSIS [None]
  - SCLERODERMA [None]
